FAERS Safety Report 7250568-5 (Version None)
Quarter: 2011Q1

REPORT INFORMATION
  Report Type: 
  Country: None (occurrence: None)
  Receive Date: 20110128
  Receipt Date: 20110126
  Transmission Date: 20110831
  Serious: Yes (Hospitalization)
  Sender: FDA-Public Use
  Company Number: CO-ROCHE-754753

PATIENT
  Sex: Male

DRUGS (1)
  1. MIRCERA [Suspect]
     Route: 058
     Dates: start: 20100630, end: 20110101

REACTIONS (2)
  - DIARRHOEA [None]
  - THROMBOCYTOPENIA [None]
